FAERS Safety Report 6318201-4 (Version None)
Quarter: 2009Q3

REPORT INFORMATION
  Report Type: 
  Country: None (occurrence: None)
  Receive Date: 20090821
  Receipt Date: 20090807
  Transmission Date: 20100115
  Serious: Yes (Hospitalization)
  Sender: FDA-Public Use
  Company Number: B0588862A

PATIENT
  Age: 32 Year
  Sex: Female

DRUGS (1)
  1. PYRIMETHAMINE [Suspect]
     Route: 065

REACTIONS (8)
  - BRAIN NATRIURETIC PEPTIDE INCREASED [None]
  - C-REACTIVE PROTEIN INCREASED [None]
  - CARDIAC DISORDER [None]
  - DRUG RASH WITH EOSINOPHILIA AND SYSTEMIC SYMPTOMS [None]
  - ELECTROCARDIOGRAM T WAVE INVERSION [None]
  - HEPATITIS [None]
  - LYMPHADENOPATHY [None]
  - PYREXIA [None]
